FAERS Safety Report 10586058 (Version 1)
Quarter: 2014Q4

REPORT INFORMATION
  Report Type: Spontaneous
  Country: US (occurrence: US)
  Receive Date: 20141115
  Receipt Date: 20141115
  Transmission Date: 20150529
  Serious: No
  Sender: FDA-Public Use
  Company Number: US-ASTRAZENECA-2014SE79076

PATIENT
  Age: 70 Year
  Sex: Female
  Weight: 71.7 kg

DRUGS (6)
  1. HEART PILL [Concomitant]
     Indication: CARDIAC DISORDER
  2. DIABETES MEDICINE [Concomitant]
     Indication: DIABETES MELLITUS
  3. NERVE PILL [Concomitant]
     Indication: NERVOUSNESS
  4. HEART PILL [Concomitant]
     Indication: CARDIAC DISORDER
  5. QUETIAPINE FUMARATE. [Suspect]
     Active Substance: QUETIAPINE FUMARATE
     Indication: BIPOLAR I DISORDER
     Dosage: 150-200 MG EVERY NIGHT
     Route: 048
     Dates: start: 2013
  6. HEART PILL [Concomitant]
     Indication: DIABETES MELLITUS

REACTIONS (2)
  - Crying [Not Recovered/Not Resolved]
  - Depressed mood [Not Recovered/Not Resolved]

NARRATIVE: CASE EVENT DATE: 2014
